FAERS Safety Report 5370018-3 (Version None)
Quarter: 2007Q2

REPORT INFORMATION
  Report Type: 
  Country: None (occurrence: None)
  Receive Date: 20070626
  Receipt Date: 20070618
  Transmission Date: 20071010
  Serious: Yes (Hospitalization)
  Sender: FDA-Public Use
  Company Number: PHBS2007HR10210

PATIENT
  Age: 76 Year
  Sex: Female

DRUGS (5)
  1. AREDIA [Suspect]
     Indication: MULTIPLE MYELOMA
     Dosage: 90 MG, QMO
     Route: 042
     Dates: start: 20000101, end: 20070601
  2. ALKERAN [Concomitant]
     Dosage: 14 MG, 4 DAYS EVERY 2 MONTHS
     Dates: end: 20060401
  3. MEDROL [Concomitant]
     Dosage: 96 MG, 4 DAYS EVERY 2ND MONTH
     Dates: end: 20060401
  4. ANTIDIABETICS [Concomitant]
  5. ANTIHYPERTENSIVES [Concomitant]

REACTIONS (2)
  - OSTEOMYELITIS [None]
  - PAIN IN JAW [None]
